FAERS Safety Report 6988090-3 (Version None)
Quarter: 2010Q3

REPORT INFORMATION
  Report Type: 
  Country: None (occurrence: None)
  Receive Date: 20100916
  Receipt Date: 20100908
  Transmission Date: 20110219
  Serious: Yes (Other)
  Sender: FDA-Public Use
  Company Number: A0881310A

PATIENT
  Sex: Male

DRUGS (1)
  1. ROSIGLITAZONE MALEATE [Suspect]
     Indication: PRODUCT USED FOR UNKNOWN INDICATION
     Route: 048

REACTIONS (4)
  - CEREBROVASCULAR ACCIDENT [None]
  - CONVULSION [None]
  - MYOCARDIAL INFARCTION [None]
  - RENAL FAILURE [None]
